FAERS Safety Report 16637212 (Version 1)
Quarter: 2019Q3

REPORT INFORMATION
  Report Type: Spontaneous
  Country: US (occurrence: US)
  Receive Date: 20190613
  Receipt Date: 20190613
  Transmission Date: 20191004
  Serious: Yes (Hospitalization)
  Sender: FDA-Public Use
  Company Number: None

PATIENT
  Age: 19 Year
  Sex: Female

DRUGS (23)
  1. ADVAIR HFA [Concomitant]
     Active Substance: FLUTICASONE PROPIONATE\SALMETEROL XINAFOATE
  2. DEKAS [Concomitant]
  3. SOD CHL [Concomitant]
     Active Substance: SODIUM CHLORIDE
  4. XULANE [Concomitant]
     Active Substance: ETHINYL ESTRADIOL\NORELGESTROMIN
  5. ADVIL [Concomitant]
     Active Substance: IBUPROFEN
  6. FISH OIL [Concomitant]
     Active Substance: FISH OIL
  7. SMZ/TMP DS [Concomitant]
     Active Substance: SULFAMETHOXAZOLE\TRIMETHOPRIM
  8. YASMIN [Concomitant]
     Active Substance: DROSPIRENONE\ETHINYL ESTRADIOL
  9. MELATONIN [Concomitant]
     Active Substance: MELATONIN
  10. MVW COMPLETE FORM [Concomitant]
  11. PULMOZYME [Suspect]
     Active Substance: DORNASE ALFA
     Indication: CYSTIC FIBROSIS
     Dosage: ?          OTHER DOSE:1 VIAL;?
     Route: 055
     Dates: start: 20190327
  12. VITAMIN D3 [Concomitant]
     Active Substance: CHOLECALCIFEROL
  13. FENOFIBRATE. [Concomitant]
     Active Substance: FENOFIBRATE
  14. LANSOPRAZOLE. [Concomitant]
     Active Substance: LANSOPRAZOLE
  15. MONTELUKAST [Concomitant]
     Active Substance: MONTELUKAST SODIUM
  16. VITAMIN C [Concomitant]
     Active Substance: ASCORBIC ACID
  17. AZITHROMYCIN ANHYDROUS. [Concomitant]
     Active Substance: AZITHROMYCIN ANHYDROUS
  18. CETIRIZINE [Concomitant]
     Active Substance: CETIRIZINE HYDROCHLORIDE
  19. ALBUTERNOL HFA [Concomitant]
  20. AZELASTINE. [Concomitant]
     Active Substance: AZELASTINE HYDROCHLORIDE
  21. POLYETH GLYCOL [Concomitant]
  22. ALBUTERNOL NEB SIN [Concomitant]
  23. TRICOR [Concomitant]
     Active Substance: FENOFIBRATE

REACTIONS (2)
  - Oxygen saturation decreased [None]
  - Lung disorder [None]

NARRATIVE: CASE EVENT DATE: 201905
